FAERS Safety Report 4662934-2 (Version None)
Quarter: 2005Q2

REPORT INFORMATION
  Report Type: 
  Country: None (occurrence: None)
  Receive Date: 20050512
  Receipt Date: 20050429
  Transmission Date: 20051028
  Serious: Yes (Hospitalization)
  Sender: FDA-Public Use
  Company Number: 106516ISR

PATIENT
  Age: 78 Year
  Sex: Male

DRUGS (5)
  1. FLUOROURACIL [Suspect]
     Indication: PERITONEAL CARCINOMA
     Dosage: 3610 MILLIGRAM, INTRAVENOUS (NOS)
     Dates: start: 20050101, end: 20050208
  2. CALCIUM LEVOFOLINATE [Suspect]
     Indication: PERITONEAL CARCINOMA
     Dosage: INTRAVENOUS (NOS)
     Dates: start: 20050101, end: 20050208
  3. DEXCHLORPHENIRAMINE MALEATE [Concomitant]
  4. PREDNISOLONE SODIUM PHOSPHATE [Concomitant]
  5. AERIUS (DESLORATADINE) [Concomitant]

REACTIONS (4)
  - DIARRHOEA [None]
  - ELECTROMYOGRAM ABNORMAL [None]
  - ICHTHYOSIS [None]
  - NEUROPATHY PERIPHERAL [None]
